FAERS Safety Report 19051616 (Version 1)
Quarter: 2021Q1

REPORT INFORMATION
  Report Type: Spontaneous
  Country: US (occurrence: US)
  Receive Date: 20210324
  Receipt Date: 20210324
  Transmission Date: 20210420
  Serious: No
  Sender: FDA-Public Use
  Company Number: US-GLAXOSMITHKLINE-US2021063958

PATIENT
  Sex: Female

DRUGS (2)
  1. HIZENTRA [Concomitant]
     Active Substance: HUMAN IMMUNOGLOBULIN G
     Indication: PRODUCT USED FOR UNKNOWN INDICATION
     Dosage: UNK
  2. NUCALA [Suspect]
     Active Substance: MEPOLIZUMAB
     Indication: ASTHMA
     Dosage: 100 MG, CYC

REACTIONS (7)
  - Upper-airway cough syndrome [Unknown]
  - Wheezing [Unknown]
  - Urinary tract infection [Unknown]
  - Sinusitis [Unknown]
  - Drug ineffective [Unknown]
  - Dyspnoea [Unknown]
  - Lung disorder [Unknown]
